FAERS Safety Report 8299457-8 (Version None)
Quarter: 2012Q2

REPORT INFORMATION
  Report Type: 
  Country: None (occurrence: None)
  Receive Date: 20120417
  Receipt Date: 20120404
  Transmission Date: 20120825
  Serious: Yes (Other)
  Sender: FDA-Public Use
  Company Number: AUR-APL-2012-01712

PATIENT
  Age: 69 Year
  Sex: Male

DRUGS (5)
  1. LEVOTHYROXINE SODIUM [Concomitant]
  2. ATORVASTATIN [Concomitant]
  3. LITHIUM CARBONATE [Concomitant]
  4. LISINOPRIL [Suspect]
     Indication: HYPERTENSION
     Dosage: 20 MG (20 MG, 1 IN 1 D)
     Dates: start: 20120127
  5. ATENOLOL [Concomitant]

REACTIONS (6)
  - HEADACHE [None]
  - LYMPHOCYTE COUNT INCREASED [None]
  - OCULAR HYPERAEMIA [None]
  - SINUSITIS BACTERIAL [None]
  - UPPER-AIRWAY COUGH SYNDROME [None]
  - TOOTH INFECTION [None]
